FAERS Safety Report 16057040 (Version 1)
Quarter: 2019Q1

REPORT INFORMATION
  Report Type: Spontaneous
  Country: US (occurrence: US)
  Receive Date: 20190311
  Receipt Date: 20190311
  Transmission Date: 20190418
  Serious: No
  Sender: FDA-Public Use
  Company Number: US-BAYER-2019-049110

PATIENT
  Age: 45 Year
  Sex: Female
  Weight: 64.4 kg

DRUGS (3)
  1. ALEVE [Suspect]
     Active Substance: NAPROXEN SODIUM
     Indication: PAIN
     Dosage: 1 DF
     Route: 048
     Dates: start: 201901, end: 20190301
  2. IBUPROFEN. [Concomitant]
     Active Substance: IBUPROFEN
     Indication: MIGRAINE
     Dosage: UNK
  3. ALEVE [Suspect]
     Active Substance: NAPROXEN SODIUM
     Indication: MIGRAINE

REACTIONS (2)
  - Product use in unapproved indication [Unknown]
  - Incorrect dose administered [Unknown]
